FAERS Safety Report 18575037 (Version 1)
Quarter: 2020Q4

REPORT INFORMATION
  Report Type: Spontaneous
  Country: US (occurrence: US)
  Receive Date: 20201203
  Receipt Date: 20201203
  Transmission Date: 20210114
  Serious: No
  Sender: FDA-Public Use
  Company Number: US-PFIZER INC-2020474698

PATIENT
  Age: 44 Year
  Sex: Female

DRUGS (1)
  1. AMLODIPINE BESILATE [Suspect]
     Active Substance: AMLODIPINE BESYLATE
     Dosage: UNK (5MG TABLET. 30 QUANTITY, 30 DAY SUPPLY)

REACTIONS (2)
  - Abdominal pain upper [Unknown]
  - Illness [Unknown]
